FAERS Safety Report 6121001-1 (Version None)
Quarter: 2009Q1

REPORT INFORMATION
  Report Type: 
  Country: None (occurrence: None)
  Receive Date: 20090312
  Receipt Date: 20090312
  Transmission Date: 20090719
  Serious: Yes (Other)
  Sender: FDA-Public Use
  Company Number: None

PATIENT
  Sex: Female
  Weight: 98.91 kg

DRUGS (9)
  1. LISINOPRIL [Suspect]
     Dosage: 2.5MG TABLET 2.5 MG QD ORAL
     Route: 048
     Dates: start: 20090311, end: 20090311
  2. ASPIRIN [Concomitant]
  3. CYMBALTA [Concomitant]
  4. GEMFIBROZIL [Concomitant]
  5. GLUCOPHAGE [Concomitant]
  6. METOPROLOL TARTRATE [Concomitant]
  7. PLAVIX [Concomitant]
  8. PRAVACHOL [Concomitant]
  9. PRILOSEC [Concomitant]

REACTIONS (1)
  - COUGH [None]
